FAERS Safety Report 13127264 (Version 3)
Quarter: 2017Q1

REPORT INFORMATION
  Report Type: Spontaneous
  Country: US (occurrence: US)
  Receive Date: 20170118
  Receipt Date: 20170221
  Transmission Date: 20170428
  Serious: Yes (Hospitalization, Other)
  Sender: FDA-Public Use
  Company Number: US-BAYER-2017-008800

PATIENT
  Age: 10 Year
  Sex: Male

DRUGS (1)
  1. HELIXATE FS [Suspect]
     Active Substance: ANTIHEMOPHILIC FACTOR, HUMAN RECOMBINANT
     Indication: FACTOR VIII DEFICIENCY
     Dosage: 1000-1100 UNITS, TIW
     Route: 042
     Dates: start: 20141212

REACTIONS (4)
  - Device issue [Recovered/Resolved]
  - Bronchitis [Recovered/Resolved]
  - Treatment noncompliance [None]
  - Haemarthrosis [Recovered/Resolved]

NARRATIVE: CASE EVENT DATE: 20161128
